FAERS Safety Report 15200446 (Version 14)
Quarter: 2022Q4

REPORT INFORMATION
  Report Type: Other
  Country: DE (occurrence: None)
  Receive Date: 20180726
  Receipt Date: 20221123
  Transmission Date: 20230112
  Serious: Yes (Hospitalization, Other)
  Sender: FDA-Public Use
  Company Number: DE-ROCHE-2126614

PATIENT
  Age: 41 Year
  Sex: Female
  Weight: 54 kg

DRUGS (18)
  1. OCREVUS [Suspect]
     Active Substance: OCRELIZUMAB
     Indication: Relapsing-remitting multiple sclerosis
     Dosage: ONCE
     Route: 042
     Dates: start: 20180423, end: 20180614
  2. OCREVUS [Suspect]
     Active Substance: OCRELIZUMAB
     Indication: Primary progressive multiple sclerosis
     Dosage: ONCE
     Route: 042
     Dates: start: 20180507, end: 20180507
  3. LEVOTHYROXINE SODIUM [Concomitant]
     Active Substance: LEVOTHYROXINE SODIUM
  4. BUDESONIDE [Concomitant]
     Active Substance: BUDESONIDE
  5. PANTOPRAZOLE SODIUM [Concomitant]
     Active Substance: PANTOPRAZOLE SODIUM
     Dosage: 1-2 PER 1 DAY
  6. METAMIZOLE [Concomitant]
     Active Substance: METAMIZOLE
  7. TIZANIDINE HYDROCHLORIDE [Concomitant]
     Active Substance: TIZANIDINE HYDROCHLORIDE
  8. MAGNESIUM CITRATE [Concomitant]
     Active Substance: MAGNESIUM CITRATE
  9. VITAMIN B COMPLEX [Concomitant]
     Active Substance: CYANOCOBALAMIN\DEXPANTHENOL\NIACINAMIDE\PYRIDOXINE HYDROCHLORIDE\RIBOFLAVIN 5^-PHOSPHATE SODIUM\THIA
  10. FOLIC ACID [Concomitant]
     Active Substance: FOLIC ACID
  11. DIMETHINDENE [Concomitant]
     Active Substance: DIMETHINDENE
  12. CANNABIDIOL\HERBALS [Concomitant]
     Active Substance: CANNABIDIOL\HERBALS
     Dosage: 1-0-0
  13. CANNABIDIOL\HERBALS [Concomitant]
     Active Substance: CANNABIDIOL\HERBALS
     Dosage: 3-0-3
  14. PROPIVERINE HYDROCHLORIDE [Concomitant]
     Active Substance: PROPIVERINE HYDROCHLORIDE
     Dosage: 1-0-0
  15. RITUXIMAB [Concomitant]
     Active Substance: RITUXIMAB
     Indication: Rheumatoid arthritis
     Dosage: SUBSEQUENT DOSES: 31/JAN/2019, 01/APR/2019
     Route: 042
     Dates: start: 20181031, end: 201904
  16. RITUXIMAB [Concomitant]
     Active Substance: RITUXIMAB
     Indication: Secondary progressive multiple sclerosis
  17. DRONABINOL [Concomitant]
     Active Substance: DRONABINOL
  18. KEPPRA [Concomitant]
     Active Substance: LEVETIRACETAM

REACTIONS (29)
  - Pruritus [Recovered/Resolved]
  - Cytokine storm [Unknown]
  - Arrhythmia [Recovering/Resolving]
  - Erythema [Recovered/Resolved]
  - Skin burning sensation [Recovering/Resolving]
  - Urinary tract infection [Not Recovered/Not Resolved]
  - Cystitis [Recovered/Resolved]
  - Pain in extremity [Recovered/Resolved]
  - Cardiac disorder [Recovered/Resolved]
  - Headache [Recovered/Resolved]
  - Nasal oedema [Unknown]
  - Hypoaesthesia [Unknown]
  - Pain of skin [Recovering/Resolving]
  - Tachycardia [Not Recovered/Not Resolved]
  - Oral candidiasis [Recovered/Resolved]
  - Fatigue [Not Recovered/Not Resolved]
  - Influenza [Recovering/Resolving]
  - B-lymphocyte count decreased [Recovered/Resolved]
  - Inflammatory marker increased [Not Recovered/Not Resolved]
  - Weight decreased [Recovered/Resolved]
  - Muscle spasticity [Not Recovered/Not Resolved]
  - Initial insomnia [Not Recovered/Not Resolved]
  - Electrocardiogram abnormal [Not Recovered/Not Resolved]
  - Oropharyngeal pain [Recovering/Resolving]
  - Fall [Unknown]
  - Muscular weakness [Not Recovered/Not Resolved]
  - Partial seizures [Not Recovered/Not Resolved]
  - Hyperacusis [Not Recovered/Not Resolved]
  - Multiple sclerosis [Not Recovered/Not Resolved]

NARRATIVE: CASE EVENT DATE: 20180423
